FAERS Safety Report 9219207 (Version 1)
Quarter: 2013Q2

REPORT INFORMATION
  Report Type: Spontaneous
  Country: US (occurrence: None)
  Receive Date: 20130405
  Receipt Date: 20130405
  Transmission Date: 20140414
  Serious: No
  Sender: FDA-Public Use
  Company Number: None

PATIENT
  Age: 40 Year
  Sex: Male

DRUGS (1)
  1. INSULIN [Suspect]
     Indication: DIABETES MELLITUS
     Dosage: 10 UNITS ONCE SQ
     Route: 058
     Dates: start: 20130210, end: 20130210

REACTIONS (11)
  - Renal failure acute [None]
  - Blood glucose increased [None]
  - Fall [None]
  - Contusion [None]
  - Tonic clonic movements [None]
  - Nystagmus [None]
  - Subdural haematoma [None]
  - Hypoglycaemia [None]
  - Cardio-respiratory arrest [None]
  - Blood glucose increased [None]
  - Convulsion [None]
